FAERS Safety Report 11244834 (Version 1)
Quarter: 2015Q3

REPORT INFORMATION
  Report Type: Spontaneous
  Country: US (occurrence: US)
  Receive Date: 20150707
  Receipt Date: 20150707
  Transmission Date: 20151125
  Serious: Yes (Other)
  Sender: FDA-Public Use
  Company Number: US-SA-2015SA091991

PATIENT
  Age: 19 Year
  Sex: Male

DRUGS (20)
  1. CYTARABINE. [Suspect]
     Active Substance: CYTARABINE
     Route: 037
     Dates: start: 20150216, end: 20150216
  2. CYTARABINE. [Suspect]
     Active Substance: CYTARABINE
     Route: 042
     Dates: start: 20150306, end: 20150308
  3. CLOFARABINE [Suspect]
     Active Substance: CLOFARABINE
     Route: 042
     Dates: start: 20150409, end: 20150414
  4. METHOTREXATE [Suspect]
     Active Substance: METHOTREXATE
     Route: 037
     Dates: start: 20150306, end: 20150306
  5. VORINOSTAT [Suspect]
     Active Substance: VORINOSTAT
     Dosage: DAY:1-6
     Route: 042
     Dates: start: 20150409, end: 20150414
  6. MESNA. [Suspect]
     Active Substance: MESNA
     Route: 042
     Dates: start: 20150209, end: 20150211
  7. CYTARABINE. [Suspect]
     Active Substance: CYTARABINE
     Route: 065
     Dates: start: 20150310, end: 20150310
  8. INOTUZUMAB OZOGAMICIN [Suspect]
     Active Substance: INOTUZUMAB OZOGAMICIN
     Dosage: DAY:3
     Route: 042
     Dates: start: 20150211, end: 20150211
  9. CYCLOPHOSPHAMIDE. [Suspect]
     Active Substance: CYCLOPHOSPHAMIDE
     Route: 042
     Dates: start: 20150209, end: 20150212
  10. METHOTREXATE [Suspect]
     Active Substance: METHOTREXATE
     Route: 037
     Dates: start: 20150210, end: 20150210
  11. FLUDARABINE PHOSPHATE. [Suspect]
     Active Substance: FLUDARABINE PHOSPHATE
     Dosage: DAY :1-6
     Route: 042
     Dates: start: 20150409, end: 20150414
  12. INOTUZUMAB OZOGAMICIN [Suspect]
     Active Substance: INOTUZUMAB OZOGAMICIN
     Dosage: DAY:3
     Route: 042
     Dates: start: 20150306, end: 20150306
  13. VINCRISTINE [Suspect]
     Active Substance: VINCRISTINE
     Route: 042
     Dates: start: 20150209, end: 20150209
  14. DEXAMETHASONE. [Suspect]
     Active Substance: DEXAMETHASONE
     Route: 042
     Dates: start: 20150209, end: 20150212
  15. DEXAMETHASONE. [Suspect]
     Active Substance: DEXAMETHASONE
     Route: 042
     Dates: start: 20150219, end: 20150222
  16. BUSULFAN [Suspect]
     Active Substance: BUSULFAN
     Route: 042
     Dates: start: 20150409, end: 20150414
  17. ACTIGALL [Concomitant]
     Active Substance: URSODIOL
     Indication: PROPHYLAXIS
     Dates: start: 20150409
  18. METHOTREXATE [Suspect]
     Active Substance: METHOTREXATE
     Route: 042
     Dates: start: 20150304, end: 20150304
  19. VINCRISTINE [Suspect]
     Active Substance: VINCRISTINE
     Route: 042
     Dates: start: 20150216, end: 20150216
  20. NEULASTA [Suspect]
     Active Substance: PEGFILGRASTIM
     Route: 058
     Dates: start: 20150214, end: 20150214

REACTIONS (1)
  - Hepatobiliary disease [Unknown]

NARRATIVE: CASE EVENT DATE: 20150428
